FAERS Safety Report 10671527 (Version 1)
Quarter: 2014Q4

REPORT INFORMATION
  Report Type: Spontaneous
  Country: DE (occurrence: DE)
  Receive Date: 20141223
  Receipt Date: 20141223
  Transmission Date: 20150529
  Serious: Yes (Hospitalization)
  Sender: FDA-Public Use
  Company Number: GXKR2014DE004743

PATIENT

DRUGS (5)
  1. RISPERDAL [Interacting]
     Active Substance: RISPERIDONE
     Dosage: 2 MG, UNK
     Dates: end: 20110219
  2. REMERGIL [Interacting]
     Active Substance: MIRTAZAPINE
     Dosage: 30 MG, UNK
  3. L-THYROXINE//LEVOTHYROXINE [Concomitant]
  4. VALPROIC ACID. [Suspect]
     Active Substance: VALPROIC ACID
     Dosage: 1000 MG, UNK
  5. RISPERDAL [Interacting]
     Active Substance: RISPERIDONE
     Dosage: 4 MG, UNK
     Dates: start: 20110220

REACTIONS (4)
  - Confusional state [Recovered/Resolved]
  - Slow response to stimuli [Recovered/Resolved]
  - Cognitive disorder [Recovered/Resolved]
  - Delirium [Recovered/Resolved]

NARRATIVE: CASE EVENT DATE: 20110221
